FAERS Safety Report 8852260 (Version 1)
Quarter: 2012Q4

REPORT INFORMATION
  Report Type: 
  Country: US (occurrence: US)
  Receive Date: 20121022
  Receipt Date: 20121022
  Transmission Date: 20130627
  Serious: No
  Sender: FDA-Public Use
  Company Number: US-MYLANLABS-2012S1011310

PATIENT
  Age: 62 Year
  Sex: Male

DRUGS (3)
  1. CARVEDILOL [Suspect]
     Indication: HEART RATE INCREASED
     Route: 048
     Dates: start: 201204
  2. RAMIPRIL [Concomitant]
     Indication: BLOOD PRESSURE INCREASED
     Dates: start: 201204
  3. RENESE [Concomitant]
     Indication: ANGINA PECTORIS
     Dates: start: 201204

REACTIONS (1)
  - Rash [Not Recovered/Not Resolved]
